FAERS Safety Report 10082048 (Version 2)
Quarter: 2015Q1

REPORT INFORMATION
  Report Type: Spontaneous
  Country: US (occurrence: None)
  Receive Date: 20140414
  Receipt Date: 20150219
  Transmission Date: 20150720
  Serious: Yes (Other)
  Sender: FDA-Public Use
  Company Number: UTC-041897

PATIENT
  Age: 54 Year
  Sex: Male
  Weight: 87.1 kg

DRUGS (3)
  1. SILDENAFIL. [Concomitant]
     Active Substance: SILDENAFIL
  2. REVATIO [Concomitant]
     Active Substance: SILDENAFIL CITRATE
  3. TYVASO [Suspect]
     Active Substance: TREPROSTINIL
     Indication: COR PULMONALE CHRONIC
     Route: 055
     Dates: start: 20121130

REACTIONS (4)
  - Headache [None]
  - Back pain [None]
  - Liver disorder [None]
  - Pain in extremity [None]

NARRATIVE: CASE EVENT DATE: 201403
